FAERS Safety Report 18298421 (Version 1)
Quarter: 2020Q3

REPORT INFORMATION
  Report Type: Spontaneous
  Country: US (occurrence: US)
  Receive Date: 20200922
  Receipt Date: 20200922
  Transmission Date: 20201103
  Serious: No
  Sender: FDA-Public Use
  Company Number: US-AMARIN PHARMA, INC.-2020AMR000038

PATIENT
  Age: 80 Year
  Sex: Female
  Weight: 94.43 kg

DRUGS (27)
  1. PYRIDIUM [Concomitant]
     Active Substance: PHENAZOPYRIDINE
     Indication: OEDEMA
     Route: 048
  2. OXYBUTININ ER [Concomitant]
     Active Substance: OXYBUTYNIN
     Indication: BLADDER DISORDER
  3. VASCEPA [Suspect]
     Active Substance: ICOSAPENT ETHYL
     Indication: PRODUCT USED FOR UNKNOWN INDICATION
     Route: 048
     Dates: start: 20191205
  4. CARVEDILOL. [Concomitant]
     Active Substance: CARVEDILOL
     Indication: HYPERTENSION
     Dates: start: 2019
  5. AMOXICILLIN. [Concomitant]
     Active Substance: AMOXICILLIN
     Indication: PROPHYLAXIS
  6. EUCRISA [Concomitant]
     Active Substance: CRISABOROLE
     Indication: DERMATITIS
     Route: 061
  7. VITAMIN D3 [Concomitant]
     Active Substance: CHOLECALCIFEROL
     Indication: PRODUCT USED FOR UNKNOWN INDICATION
     Route: 048
  8. ASPIRIN. [Concomitant]
     Active Substance: ASPIRIN
     Indication: CARDIOVASCULAR EVENT PROPHYLAXIS
  9. CITRACAL PLUS D [Concomitant]
     Indication: SUPPLEMENTATION THERAPY
     Route: 048
  10. EUCRISA [Concomitant]
     Active Substance: CRISABOROLE
     Indication: ECZEMA
  11. LOSARTAN POTASSIUM. [Concomitant]
     Active Substance: LOSARTAN POTASSIUM
     Indication: RENAL DISORDER PROPHYLAXIS
  12. SYSTANTE COMPLETE [Concomitant]
     Indication: DRY EYE
     Dosage: 0.3? 0.4%
  13. DICLOFENAC [Concomitant]
     Active Substance: DICLOFENAC
     Indication: BACK PAIN
     Route: 061
  14. IPRATROPIUM BROMIDE. [Concomitant]
     Active Substance: IPRATROPIUM BROMIDE
     Indication: HYPERSENSITIVITY
     Route: 045
  15. SYNTHROID [Concomitant]
     Active Substance: LEVOTHYROXINE SODIUM
     Indication: HYPOTHYROIDISM
  16. ZYRTEC [Concomitant]
     Active Substance: CETIRIZINE HYDROCHLORIDE
     Indication: HYPERSENSITIVITY
     Route: 048
  17. CREON EC [Concomitant]
     Indication: PANCREATITIS CHRONIC
     Route: 048
  18. PYRIDIUM [Concomitant]
     Active Substance: PHENAZOPYRIDINE
     Indication: FLUID RETENTION
  19. METFORMIN HCL [Concomitant]
     Active Substance: METFORMIN HYDROCHLORIDE
     Indication: TYPE 2 DIABETES MELLITUS
  20. NASACORT [Concomitant]
     Active Substance: TRIAMCINOLONE ACETONIDE
     Indication: HYPERSENSITIVITY
  21. MAGNESIUM [Concomitant]
     Active Substance: MAGNESIUM
     Indication: MUSCLE SPASMS
  22. LIOTHYROINE/CYTOMEL [Concomitant]
     Indication: HYPOTHYROIDISM
  23. ASPIRIN. [Concomitant]
     Active Substance: ASPIRIN
     Indication: CEREBROVASCULAR ACCIDENT PROPHYLAXIS
  24. IBUPROFEN. [Concomitant]
     Active Substance: IBUPROFEN
     Indication: PAIN
  25. LIOTHYROINE/CYTOMEL [Concomitant]
  26. TRAZODONE [Concomitant]
     Active Substance: TRAZODONE HYDROCHLORIDE
     Indication: INSOMNIA
     Route: 048
  27. EZETIMIBE. [Concomitant]
     Active Substance: EZETIMIBE
     Indication: BLOOD CHOLESTEROL ABNORMAL

REACTIONS (5)
  - Abdominal discomfort [Recovering/Resolving]
  - Product physical issue [Unknown]
  - Off label use [Unknown]
  - Product coating issue [Unknown]
  - Product odour abnormal [Unknown]

NARRATIVE: CASE EVENT DATE: 20190910
